FAERS Safety Report 13718734 (Version 1)
Quarter: 2017Q3

REPORT INFORMATION
  Report Type: Spontaneous
  Country: CO (occurrence: CO)
  Receive Date: 20170705
  Receipt Date: 20170705
  Transmission Date: 20171127
  Serious: Yes (Hospitalization, Other)
  Sender: FDA-Public Use
  Company Number: CO-PFIZER INC-2017288076

PATIENT
  Age: 10 Month
  Sex: Male
  Weight: 4.8 kg

DRUGS (1)
  1. GENOTROPIN [Suspect]
     Active Substance: SOMATROPIN
     Indication: RENAL IMPAIRMENT
     Dosage: 0.3 MG, DAILY
     Route: 058
     Dates: start: 20170609

REACTIONS (3)
  - Myocardial infarction [Recovered/Resolved]
  - Peritonitis [Unknown]
  - Product use in unapproved indication [Unknown]

NARRATIVE: CASE EVENT DATE: 201706
